FAERS Safety Report 8057878-2 (Version None)
Quarter: 2012Q1

REPORT INFORMATION
  Report Type: 
  Country: None (occurrence: None)
  Receive Date: 20120120
  Receipt Date: 20070502
  Transmission Date: 20120608
  Serious: No
  Sender: FDA-Public Use
  Company Number: 2007BI010032

PATIENT
  Sex: Female

DRUGS (7)
  1. TYSABRI [Suspect]
     Route: 042
     Dates: start: 20110524
  2. TYSABRI [Suspect]
     Indication: MULTIPLE SCLEROSIS
     Route: 042
     Dates: start: 20070124, end: 20070321
  3. TOPAMAX [Concomitant]
     Indication: TRIGEMINAL NEURALGIA
     Dates: start: 19980101
  4. PRISTIQ [Concomitant]
     Indication: DEPRESSION
     Dates: start: 20080101
  5. TOPAMAX [Concomitant]
     Indication: HEADACHE
     Dates: start: 19980101
  6. WELLBUTRIN [Concomitant]
     Indication: DEPRESSION
     Dates: start: 20110301
  7. AVONEX [Concomitant]
     Indication: MULTIPLE SCLEROSIS
     Route: 030

REACTIONS (18)
  - CONTUSION [None]
  - HYPOAESTHESIA [None]
  - FEELING ABNORMAL [None]
  - LOSS OF CONTROL OF LEGS [None]
  - KNEE OPERATION [None]
  - POSTOPERATIVE FEVER [None]
  - ARTHRITIS [None]
  - ARTHRALGIA [None]
  - ARTHROPATHY [None]
  - FALL [None]
  - BLOOD PRESSURE INCREASED [None]
  - FATIGUE [None]
  - DRUG INEFFECTIVE [None]
  - FEELING COLD [None]
  - MULTIPLE SCLEROSIS RELAPSE [None]
  - DYSKINESIA [None]
  - SYNCOPE [None]
  - OSTEOPOROSIS [None]
